FAERS Safety Report 10261451 (Version 2)
Quarter: 2014Q2

REPORT INFORMATION
  Report Type: Spontaneous
  Country: GB (occurrence: None)
  Receive Date: 20140623
  Receipt Date: 20140630
  Transmission Date: 20141212
  Serious: Yes (Other)
  Sender: FDA-Public Use
  Company Number: AUR-APL-2014-06497

PATIENT
  Age: 23 Year
  Sex: Male

DRUGS (13)
  1. RAMIPRIL [Suspect]
     Indication: PRODUCT USED FOR UNKNOWN INDICATION
  2. KALYDECO [Suspect]
     Indication: CYSTIC FIBROSIS
     Route: 048
     Dates: start: 201308
  3. ACETYLCYSTEINE [Concomitant]
  4. CALCICHEW D3 [Concomitant]
  5. CREON [Concomitant]
  6. DORNASE ALFA [Concomitant]
  7. OMEPRAZOLE (OMEPRAZOLE) [Concomitant]
  8. METFORMIN (METFORMIN) [Concomitant]
  9. URSODEOXYCHOLIC ACID [Concomitant]
  10. VITAMIN A [Concomitant]
  11. VITAMIN D (ERGOCALCIFEROL) [Concomitant]
  12. VITAMIN E (TOCOPHEROL) [Concomitant]
  13. VITAMIN K [Concomitant]

REACTIONS (1)
  - Ventricular dysfunction [None]
